FAERS Safety Report 4377876-X (Version None)
Quarter: 2004Q2

REPORT INFORMATION
  Report Type: 
  Country: None (occurrence: None)
  Receive Date: 20040609
  Receipt Date: 20040527
  Transmission Date: 20050107
  Serious: Yes (Other)
  Sender: FDA-Public Use
  Company Number: 2004215971DE

PATIENT
  Age: 42 Year
  Sex: Female
  Weight: 55 kg

DRUGS (1)
  1. FARMORUBICIN                   (EPIRUBICIN HYDROCHLORIDE) [Suspect]
     Indication: BREAST CANCER
     Dosage: CYCLE 1, IV
     Route: 042
     Dates: start: 20040421

REACTIONS (1)
  - SYNCOPE [None]
